FAERS Safety Report 23076018 (Version 1)
Quarter: 2023Q4

REPORT INFORMATION
  Report Type: Spontaneous
  Country: US (occurrence: US)
  Receive Date: 20231017
  Receipt Date: 20231017
  Transmission Date: 20240109
  Serious: No
  Sender: FDA-Public Use
  Company Number: US-ABBVIE-5443941

PATIENT
  Sex: Female
  Weight: 61.234 kg

DRUGS (1)
  1. DEPAKOTE [Suspect]
     Active Substance: DIVALPROEX SODIUM
     Indication: Migraine
     Dosage: FORM STRENGTH: 250 MILLIGRAM, FREQUENCY TEXT: 1 TABLET ONCE A DAY AND OTHER DAY 2
     Route: 048
     Dates: start: 2005

REACTIONS (3)
  - Migraine [Not Recovered/Not Resolved]
  - Product physical issue [Not Recovered/Not Resolved]
  - Therapeutic product effect incomplete [Not Recovered/Not Resolved]

NARRATIVE: CASE EVENT DATE: 20230901
